FAERS Safety Report 9436441 (Version 1)
Quarter: 2013Q3

REPORT INFORMATION
  Report Type: Spontaneous
  Country: PE (occurrence: PE)
  Receive Date: 20130802
  Receipt Date: 20130802
  Transmission Date: 20140515
  Serious: Yes (Death)
  Sender: FDA-Public Use
  Company Number: PE-AMGEN-PERSP2013054036

PATIENT
  Age: 79 Year
  Sex: Female

DRUGS (1)
  1. PROLIA [Suspect]
     Indication: OSTEOPOROSIS
     Dosage: 60MG SEE DOSAGE TEXT
     Route: 058
     Dates: start: 20130114

REACTIONS (2)
  - Respiratory arrest [Fatal]
  - Renal failure chronic [Fatal]
